FAERS Safety Report 21293015 (Version 3)
Quarter: 2022Q3

REPORT INFORMATION
  Report Type: Spontaneous
  Country: BR (occurrence: BR)
  Receive Date: 20220905
  Receipt Date: 20220930
  Transmission Date: 20221026
  Serious: Yes (Hospitalization, Other)
  Sender: FDA-Public Use
  Company Number: BR-SA-SAC20220816001448

PATIENT
  Age: 74 Year
  Sex: Female
  Weight: 75 kg

DRUGS (6)
  1. LANTUS [Suspect]
     Active Substance: INSULIN GLARGINE
     Indication: Type 2 diabetes mellitus
     Dosage: UNK UNK, BID
     Route: 065
     Dates: start: 201304
  2. DIOVAN [Concomitant]
     Active Substance: VALSARTAN
     Indication: Blood pressure measurement
     Dosage: UNK UNK, QD (1X A DAY)
     Route: 048
  3. ATORVASTATIN [Concomitant]
     Active Substance: ATORVASTATIN
     Indication: Blood cholesterol
     Dosage: UNK UNK, QD (1X A DAY)
     Route: 048
     Dates: start: 2002
  4. FLOPINE [Concomitant]
     Indication: Carotid artery disease
     Dosage: UNK UNK, QD (1X A DAY)
     Route: 048
     Dates: start: 2018
  5. VILDAGLIPTIN [Concomitant]
     Active Substance: VILDAGLIPTIN
     Indication: Diabetes mellitus
     Dosage: UNK UNK, BID (2X A DAY)
     Route: 048
  6. ASPIRIN [Concomitant]
     Active Substance: ASPIRIN

REACTIONS (5)
  - Wound complication [Unknown]
  - Erysipelas [Unknown]
  - Visual impairment [Unknown]
  - Off label use [Unknown]
  - Inappropriate schedule of product administration [Unknown]

NARRATIVE: CASE EVENT DATE: 20150101
